FAERS Safety Report 14924582 (Version 4)
Quarter: 2018Q3

REPORT INFORMATION
  Report Type: Spontaneous
  Country: US (occurrence: US)
  Receive Date: 20180522
  Receipt Date: 20180906
  Transmission Date: 20181010
  Serious: Yes (Other)
  Sender: FDA-Public Use
  Company Number: US-PFIZER INC-2018206625

PATIENT
  Age: 71 Year
  Sex: Female
  Weight: 68.93 kg

DRUGS (7)
  1. LORAZEPAM. [Concomitant]
     Active Substance: LORAZEPAM
     Dosage: 0.5 MG, AS NEEDED
  2. CENTRUM WOMEN 50+ [Concomitant]
     Active Substance: VITAMINS
     Dosage: UNK UNK, 1X/DAY, (WOMEN CENTRUM OVER 50 ONCE A DAY)
  3. VENLAFAXINE HCL [Suspect]
     Active Substance: VENLAFAXINE HYDROCHLORIDE
     Indication: DEPRESSION
  4. ALENDRONATE SODIUM. [Concomitant]
     Active Substance: ALENDRONATE SODIUM
     Dosage: 70 MG, WEEKLY
  5. ATORVASTATIN [Concomitant]
     Active Substance: ATORVASTATIN
     Dosage: 200 MG, 1X/DAY
  6. VENLAFAXINE HCL [Suspect]
     Active Substance: VENLAFAXINE HYDROCHLORIDE
     Indication: ANXIETY
     Dosage: 225 MG, 1X/DAY (150MG CAPSULE AND 75MG CAPSULE FOR A TOTAL OF 225MG BY MOUTH ONCE A DAY)
     Route: 048
     Dates: start: 2007, end: 20180326
  7. GABAPENTIN. [Suspect]
     Active Substance: GABAPENTIN
     Indication: NEUROPATHY VITAMIN B12 DEFICIENCY
     Dosage: 600 MG, 3X/DAY (THREE TIMES A DAY TAKEN AT 6,8 AND 10)
     Route: 048
     Dates: start: 2011

REACTIONS (6)
  - Memory impairment [Not Recovered/Not Resolved]
  - Balance disorder [Not Recovered/Not Resolved]
  - Dizziness [Not Recovered/Not Resolved]
  - Deafness [Unknown]
  - Intentional product misuse [Not Recovered/Not Resolved]
  - Gait disturbance [Not Recovered/Not Resolved]

NARRATIVE: CASE EVENT DATE: 20180326
